FAERS Safety Report 11504563 (Version 1)
Quarter: 2015Q3

REPORT INFORMATION
  Report Type: Spontaneous
  Country: US (occurrence: US)
  Receive Date: 20150915
  Receipt Date: 20150915
  Transmission Date: 20151125
  Serious: No
  Sender: FDA-Public Use
  Company Number: US-ROCHE-801192

PATIENT
  Sex: Female

DRUGS (3)
  1. PEGASYS [Suspect]
     Active Substance: PEGINTERFERON ALFA-2A
     Indication: CHRONIC HEPATITIS C
     Dosage: FORM REPORTED PRE FILLED SYRINGE.
     Route: 058
  2. RIBAVIRIN. [Suspect]
     Active Substance: RIBAVIRIN
     Indication: CHRONIC HEPATITIS C
     Dosage: 1000 MG/DAY DIVIDED DOSES ORALLY
     Route: 048
  3. TELAPREVIR [Suspect]
     Active Substance: TELAPREVIR
     Indication: CHRONIC HEPATITIS C
     Dosage: 750 MG 3 TIMES A DAY FOR A 24-48 WEEK LENGTH OF THERAPY
     Route: 065

REACTIONS (8)
  - Depression [Unknown]
  - Slow speech [Unknown]
  - Somnolence [Unknown]
  - Rectal haemorrhage [Unknown]
  - Pyrexia [Unknown]
  - Constipation [Unknown]
  - Back pain [Unknown]
  - Pain [Unknown]
